FAERS Safety Report 9531471 (Version 1)
Quarter: 2013Q2

REPORT INFORMATION
  Report Type: Spontaneous
  Country: US (occurrence: None)
  Receive Date: 20130503
  Receipt Date: 20130503
  Transmission Date: 20140414
  Serious: No
  Sender: FDA-Public Use
  Company Number: 1000041501

PATIENT
  Age: 76 Year
  Sex: Female

DRUGS (10)
  1. DALIRESP (ROFLUMILAST) (500 MICROGRAM, TABLETS) [Suspect]
     Indication: CHRONIC OBSTRUCTIVE PULMONARY DISEASE
     Dosage: 500 MCG, 1 IN 1 D
     Route: 048
     Dates: start: 201212
  2. RANITIDINE (RANITIDINE) (RANITIDINE) [Concomitant]
  3. AMLODIPINE (AMLODIPINE) (AMLODIPINE) [Concomitant]
  4. CARVEDILOL (CARVEDILOL) (CARVEDILOL) [Concomitant]
  5. HYDROCHLOROTHIAZIDE (HYDROCHLOROTHIAZIDE) (HYDROCHLOROTHIAZIDE) [Concomitant]
  6. PAROXETINE (PAROXETINE) (PAROXETINE) [Concomitant]
  7. PRAVASTATIN (PRAVASTATIN) (PRAVASTATIN) [Concomitant]
  8. RALOXIFENE (RALOXIFENE) (RALOXIFENE) [Concomitant]
  9. ADVAIR (SERETIDE) (SERETIDE) [Concomitant]
  10. HYDROCODONE (HYDROCODONE) (HYDROCODONE) [Concomitant]

REACTIONS (4)
  - Insomnia [None]
  - Decreased appetite [None]
  - Nausea [None]
  - Abnormal dreams [None]
